FAERS Safety Report 4866192-5 (Version None)
Quarter: 2005Q4

REPORT INFORMATION
  Report Type: 
  Country: None (occurrence: None)
  Receive Date: 20051227
  Receipt Date: 20051219
  Transmission Date: 20060501
  Serious: Yes (Hospitalization)
  Sender: FDA-Public Use
  Company Number: PHBS2005DE18815

PATIENT
  Age: 53 Year
  Sex: Female

DRUGS (1)
  1. CLOZAPINE [Suspect]
     Indication: AKATHISIA
     Dosage: 650 MG/D
     Route: 065

REACTIONS (23)
  - AGITATION [None]
  - AGRANULOCYTOSIS [None]
  - BLOOD IMMUNOGLOBULIN M INCREASED [None]
  - BRONCHOPNEUMONIA [None]
  - CONDUCTION DISORDER [None]
  - COORDINATION ABNORMAL [None]
  - CSF PROTEIN INCREASED [None]
  - CSF TEST ABNORMAL [None]
  - ELECTROENCEPHALOGRAM ABNORMAL [None]
  - FUNGUS SEROLOGY TEST POSITIVE [None]
  - GUILLAIN-BARRE SYNDROME [None]
  - HYPOAESTHESIA [None]
  - MOTOR DYSFUNCTION [None]
  - PAIN IN EXTREMITY [None]
  - PARESIS [None]
  - PLEURAL EFFUSION [None]
  - POLYNEUROPATHY [None]
  - PYREXIA [None]
  - SERRATIA INFECTION [None]
  - SUBCUTANEOUS ABSCESS [None]
  - SURGERY [None]
  - URINARY INCONTINENCE [None]
  - URINARY TRACT INFECTION [None]
